FAERS Safety Report 11130134 (Version 1)
Quarter: 2015Q2

REPORT INFORMATION
  Report Type: Spontaneous
  Country: US (occurrence: US)
  Receive Date: 20150521
  Receipt Date: 20150521
  Transmission Date: 20150821
  Serious: No
  Sender: FDA-Public Use
  Company Number: US-ELI_LILLY_AND_COMPANY-US201504008561

PATIENT
  Sex: Male

DRUGS (5)
  1. VIAGRA [Concomitant]
     Active Substance: SILDENAFIL CITRATE
  2. VOLTAREN [Concomitant]
     Active Substance: DICLOFENAC SODIUM
  3. CIALIS [Suspect]
     Active Substance: TADALAFIL
     Indication: ERECTILE DYSFUNCTION
     Dosage: 10 MG, PRN
     Route: 065
     Dates: start: 20141022
  4. SYNTHROID [Concomitant]
     Active Substance: LEVOTHYROXINE SODIUM
  5. TIZANIDINE (TIZANIDINE) [Concomitant]
     Active Substance: TIZANIDINE

REACTIONS (4)
  - Flushing [Unknown]
  - Wrong technique in drug usage process [Unknown]
  - Erythema [Unknown]
  - Drug ineffective [Unknown]
